FAERS Safety Report 5109978-4 (Version None)
Quarter: 2006Q3

REPORT INFORMATION
  Report Type: 
  Country: None (occurrence: None)
  Receive Date: 20060921
  Receipt Date: 20060912
  Transmission Date: 20061208
  Serious: Yes (Other)
  Sender: FDA-Public Use
  Company Number: US-BAYER-200613889BCC

PATIENT
  Age: 60 Year
  Sex: Female
  Weight: 95 kg

DRUGS (5)
  1. ALEVE [Suspect]
     Indication: ARTHRALGIA
     Dosage: TOTAL DAILY DOSE: 220 MG  UNIT DOSE: 220 MG
     Route: 048
     Dates: start: 20060910
  2. ZOLOFT [Concomitant]
  3. NEXIUM [Concomitant]
  4. LIPITOR [Concomitant]
  5. DICLOFENAC [Concomitant]

REACTIONS (3)
  - CHEST PAIN [None]
  - MALAISE [None]
  - VOMITING [None]
